FAERS Safety Report 5451486-5 (Version None)
Quarter: 2007Q3

REPORT INFORMATION
  Report Type: 
  Country: None (occurrence: None)
  Receive Date: 20070913
  Receipt Date: 20070910
  Transmission Date: 20080115
  Serious: Yes (Life-Threatening, Other)
  Sender: FDA-Public Use
  Company Number: CA-ASTRAZENECA-2007UW20071

PATIENT
  Age: 51 Year
  Sex: Male
  Weight: 86.4 kg

DRUGS (2)
  1. LOSEC I.V. [Suspect]
     Route: 048
  2. VIRAMUNE [Interacting]
     Indication: HIV INFECTION
     Route: 048

REACTIONS (4)
  - DRUG INTERACTION [None]
  - INFLUENZA LIKE ILLNESS [None]
  - PYREXIA [None]
  - RASH [None]
